FAERS Safety Report 24231314 (Version 2)
Quarter: 2025Q1

REPORT INFORMATION
  Report Type: Report from Study
  Country: US (occurrence: US)
  Receive Date: 20240821
  Receipt Date: 20250225
  Transmission Date: 20250409
  Serious: No
  Sender: TAKEDA
  Company Number: US-TAKEDA-2022TUS081387

PATIENT
  Sex: Male

DRUGS (3)
  1. VEDOLIZUMAB [Suspect]
     Active Substance: VEDOLIZUMAB
     Indication: Colitis ulcerative
  2. VEDOLIZUMAB [Suspect]
     Active Substance: VEDOLIZUMAB
  3. TESTOSTERONE ENANTHATE [Concomitant]
     Active Substance: TESTOSTERONE ENANTHATE

REACTIONS (9)
  - Diarrhoea [Recovered/Resolved]
  - Tenderness [Unknown]
  - Sunburn [Unknown]
  - Product dose omission issue [Unknown]
  - Inappropriate schedule of product administration [Unknown]
  - Abdominal pain [Recovered/Resolved]
  - Muscle spasms [Recovered/Resolved]
  - Headache [Recovered/Resolved]
  - Nausea [Unknown]
